FAERS Safety Report 16135785 (Version 1)
Quarter: 2019Q1

REPORT INFORMATION
  Report Type: Spontaneous
  Country: FR (occurrence: FR)
  Receive Date: 20190329
  Receipt Date: 20190329
  Transmission Date: 20190418
  Serious: Yes (Other)
  Sender: FDA-Public Use
  Company Number: FR-TEVA-2019-FR-1030977

PATIENT
  Age: 43 Year
  Sex: Female

DRUGS (1)
  1. TAMOXIFENE BASE [Suspect]
     Active Substance: TAMOXIFEN
     Indication: BREAST CANCER
     Dosage: NP
     Route: 048
     Dates: start: 20171009

REACTIONS (1)
  - Chronic cutaneous lupus erythematosus [Recovered/Resolved]

NARRATIVE: CASE EVENT DATE: 201804
